FAERS Safety Report 6248818-7 (Version None)
Quarter: 2009Q2

REPORT INFORMATION
  Report Type: 
  Country: None (occurrence: None)
  Receive Date: 20090624
  Receipt Date: 20090609
  Transmission Date: 20091009
  Serious: Yes (Other)
  Sender: FDA-Public Use
  Company Number: 002#1#2008-00379

PATIENT
  Sex: Female

DRUGS (2)
  1. ROTIGOTINE [Suspect]
     Indication: PARKINSON'S DISEASE
     Dosage: SEE IMAGE, TRANSDERMAL
     Route: 062
     Dates: start: 20071106, end: 20080409
  2. ROTIGOTINE [Suspect]
     Indication: PARKINSON'S DISEASE
     Dosage: SEE IMAGE, TRANSDERMAL
     Route: 062
     Dates: start: 20080421

REACTIONS (4)
  - DEPRESSION [None]
  - DRUG DEPENDENCE [None]
  - MOOD SWINGS [None]
  - SUICIDAL IDEATION [None]
